FAERS Safety Report 8947664 (Version 1)
Quarter: 2012Q4

REPORT INFORMATION
  Report Type: 
  Country: US (occurrence: US)
  Receive Date: 20121204
  Receipt Date: 20121204
  Transmission Date: 20130627
  Serious: Yes (Death)
  Sender: FDA-Public Use
  Company Number: US-UCBSA-072221

PATIENT
  Age: 57 Year
  Sex: Male

DRUGS (4)
  1. VIMPAT [Suspect]
     Indication: EPILEPSY
  2. TOPAMAX [Concomitant]
  3. TESTOSTERONE [Concomitant]
  4. OXYCODONE [Concomitant]

REACTIONS (1)
  - Completed suicide [Fatal]
